FAERS Safety Report 21965967 (Version 12)
Quarter: 2023Q4

REPORT INFORMATION
  Report Type: Report from Study
  Country: CA (occurrence: CA)
  Receive Date: 20230208
  Receipt Date: 20231210
  Transmission Date: 20240109
  Serious: Yes (Hospitalization)
  Sender: FDA-Public Use
  Company Number: CA-JNJFOC-20220942370

PATIENT
  Age: 19 Year
  Sex: Female
  Weight: 60 kg

DRUGS (6)
  1. REMICADE [Suspect]
     Active Substance: INFLIXIMAB
     Indication: Crohn^s disease
     Dosage: ON 05-JAN-2023, THE PATIENT HAD RECEIVED 37TH INFLIXIMAB INFUSION AT DOSE OF 600MG AND PARTIAL HARVE
     Route: 041
     Dates: start: 20190916
  2. REMICADE [Suspect]
     Active Substance: INFLIXIMAB
     Dosage: DOSE 10MG/KG. THERAPY START DATE 19-SEP-2022
     Route: 041
     Dates: start: 20220914
  3. REMICADE [Suspect]
     Active Substance: INFLIXIMAB
     Dosage: EXPIRY DATE: AUG-2025, SEP-2025, NOV-2025
     Route: 041
     Dates: start: 202209
  4. REMICADE [Suspect]
     Active Substance: INFLIXIMAB
     Dosage: UNIT DOSE- MORE THAN 10MG/KG (ROUNDING OF DOSE)?START: 08-JUL-2023.?EXPIRY DATE: NOV-2025
     Route: 041
     Dates: start: 202309
  5. REMICADE [Suspect]
     Active Substance: INFLIXIMAB
     Route: 041
     Dates: start: 20221013
  6. REMICADE [Suspect]
     Active Substance: INFLIXIMAB
     Route: 041
     Dates: start: 202311

REACTIONS (15)
  - Abscess [Not Recovered/Not Resolved]
  - Postoperative abscess [Not Recovered/Not Resolved]
  - Clostridium difficile infection [Recovered/Resolved]
  - Fistula [Unknown]
  - Sacroiliitis [Recovering/Resolving]
  - Intestinal resection [Recovered/Resolved]
  - Wound dehiscence [Unknown]
  - Intestinal obstruction [Recovering/Resolving]
  - Crohn^s disease [Recovered/Resolved]
  - Hospitalisation [Recovered/Resolved]
  - Weight increased [Unknown]
  - Pallor [Unknown]
  - Malaise [Unknown]
  - Hypersensitivity [Recovering/Resolving]
  - Off label use [Unknown]

NARRATIVE: CASE EVENT DATE: 20220901
